FAERS Safety Report 7774885 (Version 3)
Quarter: 2014Q1

REPORT INFORMATION
  Report Type: Spontaneous
  Country: CH (occurrence: CH)
  Receive Date: 20110126
  Receipt Date: 20140318
  Transmission Date: 20141002
  Serious: Yes (Other)
  Sender: FDA-Public Use
  Company Number: CH-ROCHE-754385

PATIENT
  Age: 61 Year
  Sex: Female

DRUGS (8)
  1. BONVIVA [Suspect]
     Indication: OSTEOPOROSIS
     Route: 040
  2. BONVIVA [Suspect]
     Route: 042
  3. BONVIVA [Suspect]
     Route: 042
  4. SORTIS [Concomitant]
     Indication: DYSLIPIDAEMIA
     Route: 048
  5. RENITEN [Concomitant]
     Indication: PRODUCT USED FOR UNKNOWN INDICATION
     Route: 048
  6. PLAQUENIL [Concomitant]
     Indication: SYSTEMIC LUPUS ERYTHEMATOSUS
     Route: 048
  7. ASPIRIN CARDIO [Concomitant]
     Indication: CARDIOVASCULAR EVENT PROPHYLAXIS
     Route: 048
  8. PANTOPRAZOLE [Concomitant]
     Route: 065

REACTIONS (6)
  - Hepatitis cholestatic [Recovered/Resolved]
  - Drug-induced liver injury [Recovered/Resolved]
  - Asthenia [Recovered/Resolved]
  - Fatigue [Recovered/Resolved]
  - Hepatic function abnormal [Recovered/Resolved]
  - Blood immunoglobulin G increased [Recovered/Resolved]
